FAERS Safety Report 10195660 (Version 1)
Quarter: 2014Q2

REPORT INFORMATION
  Report Type: Spontaneous
  Country: US (occurrence: US)
  Receive Date: 20140527
  Receipt Date: 20140527
  Transmission Date: 20141212
  Serious: No
  Sender: FDA-Public Use
  Company Number: US-BIOGENIDEC-2014BI049494

PATIENT
  Sex: Female

DRUGS (1)
  1. TYSABRI [Suspect]
     Indication: MULTIPLE SCLEROSIS
     Route: 042
     Dates: start: 20110128, end: 20130104

REACTIONS (3)
  - Cellulitis [Recovered/Resolved]
  - Ingrowing nail [Recovered/Resolved]
  - Infection susceptibility increased [Recovered/Resolved]
